FAERS Safety Report 7481081-8 (Version None)
Quarter: 2011Q2

REPORT INFORMATION
  Report Type: 
  Country: None (occurrence: None)
  Receive Date: 20110516
  Receipt Date: 20110502
  Transmission Date: 20111010
  Serious: Yes (Other)
  Sender: FDA-Public Use
  Company Number: US-BAYER-200939995NA

PATIENT
  Sex: Male

DRUGS (9)
  1. TRASYLOL [Suspect]
     Indication: PRODUCT USED FOR UNKNOWN INDICATION
     Route: 042
     Dates: start: 20020403
  2. LOPRESSOR [Concomitant]
     Dosage: 25 MG, BID
  3. BACTRIM [Concomitant]
     Dosage: REGULAR STRENGTH DAILY FOR 3 DAYSUNK
  4. CORDARONE [Concomitant]
     Dosage: 200 MG, Q12H
  5. COUMADIN [Concomitant]
     Dosage: 1 MG, QD
  6. OXYGEN [Concomitant]
     Dosage: 4 L BY NASAL CANNULA
     Route: 045
  7. CARDIZEM CD [Concomitant]
     Dosage: 120 MG, QD
  8. LEVAQUIN [Concomitant]
     Dosage: 250MG DAILY FOR 4 DAYS
  9. DILANTIN [Concomitant]
     Dosage: 200MG TID FOR RECURRENT SEIZURES

REACTIONS (11)
  - RENAL FAILURE [None]
  - INJURY [None]
  - RENAL IMPAIRMENT [None]
  - EMOTIONAL DISTRESS [None]
  - STRESS [None]
  - FEAR [None]
  - UNEVALUABLE EVENT [None]
  - RENAL INJURY [None]
  - ANXIETY [None]
  - PAIN [None]
  - ANHEDONIA [None]
